FAERS Safety Report 24029302 (Version 1)
Quarter: 2024Q2

REPORT INFORMATION
  Report Type: Spontaneous
  Country: US (occurrence: US)
  Receive Date: 20240628
  Receipt Date: 20240628
  Transmission Date: 20240715
  Serious: Yes (Life-Threatening, Hospitalization)
  Sender: FDA-Public Use
  Company Number: US-MYLANLABS-2024M1058581

PATIENT
  Age: 75 Year
  Sex: Female

DRUGS (2)
  1. PHENYTOIN [Suspect]
     Active Substance: PHENYTOIN
     Indication: Epilepsy
     Dosage: UNK; INITIAL DOSAGE AND ROUTE NOT STATED
     Route: 065
  2. PHENYTOIN [Suspect]
     Active Substance: PHENYTOIN
     Indication: Epilepsy
     Dosage: 20 MILLIGRAM/KILOGRAM; 20 MILLIGRAM/KILOGRAM,INFUSION RATE OF 60 MG/MINUTE [LOADING DOSE] , INFUSION
     Route: 065

REACTIONS (2)
  - Bradyarrhythmia [Recovered/Resolved]
  - Hypotension [Unknown]
